FAERS Safety Report 9627691 (Version 2)
Quarter: 2013Q4

REPORT INFORMATION
  Report Type: Not Available
  Country: US (occurrence: US)
  Receive Date: 20131016
  Receipt Date: 20131016
  Transmission Date: 20140711
  Serious: Yes (Other)
  Sender: FDA-Public Use
  Company Number: US-LUNDBECK-DKLU1091202

PATIENT
  Sex: Female

DRUGS (2)
  1. SABRIL (FOR ORAL SOLUTION) [Suspect]
     Indication: INFANTILE SPASMS
     Dates: start: 201207
  2. FELBAMATE [Concomitant]
     Indication: INFANTILE SPASMS

REACTIONS (2)
  - Visual impairment [Unknown]
  - Somnolence [Recovering/Resolving]
